FAERS Safety Report 7222933-3 (Version None)
Quarter: 2011Q1

REPORT INFORMATION
  Report Type: 
  Country: None (occurrence: None)
  Receive Date: 20110106
  Receipt Date: 20110106
  Transmission Date: 20110831
  Serious: Yes (Hospitalization)
  Sender: FDA-Public Use
  Company Number: None

PATIENT
  Age: 74 Year
  Sex: Male
  Weight: 123.5 kg

DRUGS (7)
  1. WARFARIN SODIUM [Suspect]
     Indication: ATRIAL FIBRILLATION
     Dosage: 5MG/2.5MG  S T WES/M TU PO (CHRONIC)
     Route: 048
  2. VITAMIN B-12 [Concomitant]
  3. BIOTIN FE [Concomitant]
  4. METOPROLOL TARTRATE [Concomitant]
  5. ALEVE [Suspect]
     Dosage: 1 TABLET QDAY PRN PO CHRONIC
  6. VITAMIN D [Concomitant]
  7. ASCORBIC ACID [Concomitant]

REACTIONS (3)
  - INTERNATIONAL NORMALISED RATIO INCREASED [None]
  - DIVERTICULUM INTESTINAL HAEMORRHAGIC [None]
  - LOWER GASTROINTESTINAL HAEMORRHAGE [None]
